FAERS Safety Report 8301275-9 (Version None)
Quarter: 2012Q2

REPORT INFORMATION
  Report Type: 
  Country: None (occurrence: None)
  Receive Date: 20120420
  Receipt Date: 20120412
  Transmission Date: 20120825
  Serious: Yes (Life-Threatening)
  Sender: FDA-Public Use
  Company Number: JP-CELGENEUS-087-50794-12041966

PATIENT
  Sex: Male
  Weight: 63 kg

DRUGS (21)
  1. RED BLOOD CELLS [Concomitant]
     Route: 041
  2. AMIKACIN SULFATE [Concomitant]
     Route: 065
     Dates: start: 20110604, end: 20110610
  3. ANTIBIOTICS [Concomitant]
     Route: 065
  4. AMLODIPINE [Concomitant]
     Route: 065
     Dates: start: 20110501
  5. GRAN [Concomitant]
     Route: 065
     Dates: start: 20110711, end: 20110721
  6. URSO 250 [Concomitant]
     Route: 065
     Dates: start: 20110501
  7. BISOLVON [Concomitant]
     Route: 065
     Dates: start: 20110602, end: 20110603
  8. EXJADE [Concomitant]
     Route: 065
     Dates: start: 20110729, end: 20110908
  9. ALOXI [Concomitant]
     Route: 065
     Dates: start: 20110514, end: 20110514
  10. LASIX [Concomitant]
     Route: 065
     Dates: start: 20110515, end: 20110515
  11. ITRACONAZOLE [Concomitant]
     Route: 065
     Dates: start: 20110513
  12. VIDAZA [Suspect]
     Dosage: 56.25 MILLIGRAM/SQ. METER
     Route: 058
     Dates: start: 20110513, end: 20110519
  13. GLAKAY [Concomitant]
     Route: 065
     Dates: start: 20110501
  14. MUCOSTA [Concomitant]
     Route: 065
     Dates: start: 20110513
  15. VIDAZA [Suspect]
     Dosage: 56.25 MILLIGRAM/SQ. METER
     Route: 058
     Dates: start: 20110621, end: 20110627
  16. ALOXI [Concomitant]
     Route: 065
     Dates: start: 20110621, end: 20110621
  17. ANABOLIC STERIOD HORMONE [Concomitant]
     Route: 065
  18. FIRSTCIN [Concomitant]
     Route: 065
     Dates: start: 20110604, end: 20110610
  19. LAXOBERON [Concomitant]
     Route: 065
     Dates: start: 20110501
  20. LOXOPROFEN SODIUM HYDRATE [Concomitant]
     Route: 065
     Dates: start: 20110513
  21. DIAMOX [Concomitant]
     Route: 065
     Dates: start: 20110517, end: 20110517

REACTIONS (2)
  - PLATELET COUNT DECREASED [None]
  - FEBRILE NEUTROPENIA [None]
